FAERS Safety Report 9054391 (Version 1)
Quarter: 2013Q1

REPORT INFORMATION
  Report Type: Spontaneous
  Country: US (occurrence: US)
  Receive Date: 20130208
  Receipt Date: 20130208
  Transmission Date: 20140127
  Serious: No
  Sender: FDA-Public Use
  Company Number: US-GLAXOSMITHKLINE-A0979173A

PATIENT
  Age: 53 Year
  Sex: Male

DRUGS (3)
  1. PAXIL CR [Suspect]
     Indication: ANXIETY
     Dosage: 75MG PER DAY
     Route: 048
     Dates: end: 201203
  2. MICARDIS [Concomitant]
  3. CRESTOR [Concomitant]

REACTIONS (2)
  - Withdrawal syndrome [Unknown]
  - Anxiety [Unknown]
